FAERS Safety Report 12853439 (Version 1)
Quarter: 2016Q4

REPORT INFORMATION
  Report Type: Spontaneous
  Country: CH (occurrence: CH)
  Receive Date: 20161017
  Receipt Date: 20161017
  Transmission Date: 20170207
  Serious: Yes (Other)
  Sender: FDA-Public Use
  Company Number: CH-ROCHE-1841403

PATIENT
  Age: 50 Year
  Sex: Male
  Weight: 84 kg

DRUGS (18)
  1. VI-DE 3 [Concomitant]
     Active Substance: CHOLECALCIFEROL
     Route: 065
  2. TARGIN [Concomitant]
     Active Substance: NALOXONE HYDROCHLORIDE\OXYCODONE HYDROCHLORIDE
     Route: 065
  3. DUPHALAC SIRUP (SWITZERLAND) [Concomitant]
     Route: 065
  4. OXYNORM [Concomitant]
     Active Substance: OXYCODONE HYDROCHLORIDE
     Route: 065
  5. CELLCEPT [Suspect]
     Active Substance: MYCOPHENOLATE MOFETIL\MYCOPHENOLATE MOFETIL HYDROCHLORIDE
     Indication: LIVER TRANSPLANT
     Route: 048
     Dates: start: 201609
  6. ACYCLOVIR. [Interacting]
     Active Substance: ACYCLOVIR
     Indication: HERPES SIMPLEX
     Route: 042
     Dates: start: 20160920, end: 20160926
  7. RESONIUM A [Concomitant]
     Active Substance: SODIUM POLYSTYRENE SULFONATE
     Route: 065
  8. FOLSAURE [Concomitant]
     Active Substance: FOLIC ACID
     Route: 065
  9. NOVORAPID [Concomitant]
     Active Substance: INSULIN ASPART
     Route: 065
  10. PANTOPRAZOL [Concomitant]
     Active Substance: PANTOPRAZOLE SODIUM
     Dosage: REPORTED AS PANTOPRAZOL SANDOZ
     Route: 065
  11. PERFALGAN [Concomitant]
     Active Substance: ACETAMINOPHEN
     Route: 065
  12. ZENTEL [Concomitant]
     Active Substance: ALBENDAZOLE
     Route: 065
  13. BACTRIM [Concomitant]
     Active Substance: SULFAMETHOXAZOLE\TRIMETHOPRIM
     Route: 065
  14. MEROPENEM TRIHYDRATE [Concomitant]
     Active Substance: MEROPENEM
     Route: 065
  15. PROGRAF [Concomitant]
     Active Substance: TACROLIMUS\TACROLIMUS ANHYDROUS
     Route: 065
  16. ZEFFIX [Concomitant]
     Active Substance: LAMIVUDINE
     Route: 065
  17. VANCOCIN [Concomitant]
     Active Substance: VANCOMYCIN HYDROCHLORIDE
     Route: 065
  18. CALCIPARINE [Concomitant]
     Active Substance: HEPARIN CALCIUM
     Route: 065

REACTIONS (6)
  - Drug interaction [Unknown]
  - Somnolence [Recovered/Resolved]
  - Abnormal dreams [Recovered/Resolved]
  - Confusional state [Recovered/Resolved]
  - Headache [Recovered/Resolved]
  - Accidental overdose [Unknown]

NARRATIVE: CASE EVENT DATE: 20160920
